FAERS Safety Report 8080023-4 (Version None)
Quarter: 2012Q1

REPORT INFORMATION
  Report Type: 
  Country: None (occurrence: None)
  Receive Date: 20120128
  Receipt Date: 20110811
  Transmission Date: 20120608
  Serious: No
  Sender: FDA-Public Use
  Company Number: US-ABBOTT-11P-163-0845827-00

PATIENT
  Age: 58 Year
  Sex: Female

DRUGS (4)
  1. HUMIRA [Suspect]
     Indication: PSORIASIS
     Dates: start: 20070101
  2. PREMARIN [Concomitant]
     Indication: HORMONE LEVEL ABNORMAL
  3. LOSARTAN POTASSIUM AND HYDROCHLOROTHIAZIDE [Concomitant]
     Indication: HYPERTENSION
     Dosage: 100/25: DAILY
  4. SPIRONALACTONE/HCTZ [Concomitant]
     Indication: FLUID RETENTION
     Dosage: 25/25MG: DAILY

REACTIONS (2)
  - NEPHROLITHIASIS [None]
  - FUNGAL INFECTION [None]
